FAERS Safety Report 18032855 (Version 1)
Quarter: 2020Q3

REPORT INFORMATION
  Report Type: Report from Study
  Country: US (occurrence: US)
  Receive Date: 20200716
  Receipt Date: 20200716
  Transmission Date: 20201103
  Serious: Yes (Congenital Anomaly, Other)
  Sender: FDA-Public Use
  Company Number: US-UCBSA-2020027971

PATIENT

DRUGS (2)
  1. LEVETIRACETAM. [Suspect]
     Active Substance: LEVETIRACETAM
     Indication: SEIZURE
     Dosage: MEDIAN DOSE OF 1500 MILLIGRAM
     Route: 064
  2. PHENOBARBITAL. [Concomitant]
     Active Substance: PHENOBARBITAL
     Indication: SEIZURE
     Dosage: MEDIAN DOSE OF 50 MILLIGRAM
     Route: 064

REACTIONS (2)
  - Inguinal hernia [Unknown]
  - Maternal exposure during pregnancy [Unknown]
